FAERS Safety Report 5164221-5 (Version None)
Quarter: 2006Q4

REPORT INFORMATION
  Report Type: 
  Country: None (occurrence: None)
  Receive Date: 20060918
  Receipt Date: 20050913
  Transmission Date: 20070319
  Serious: Yes (Hospitalization)
  Sender: FDA-Public Use
  Company Number: PHEH2005US09558

PATIENT
  Age: 68 Year
  Sex: Female

DRUGS (5)
  1. FEMARA [Suspect]
     Dosage: 2.5 MG, QD, ORAL
     Route: 048
     Dates: start: 20050720, end: 20050801
  2. COUMADIN [Concomitant]
  3. CELEBREX [Concomitant]
  4. EFFEXOR [Concomitant]
  5. PROTONIX [Concomitant]

REACTIONS (7)
  - CHEST PAIN [None]
  - DEEP VEIN THROMBOSIS [None]
  - OEDEMA PERIPHERAL [None]
  - PAIN IN EXTREMITY [None]
  - PULMONARY EMBOLISM [None]
  - PULMONARY THROMBOSIS [None]
  - THROMBOSIS [None]
